FAERS Safety Report 19493976 (Version 1)
Quarter: 2021Q3

REPORT INFORMATION
  Report Type: Spontaneous
  Country: DE (occurrence: DE)
  Receive Date: 20210706
  Receipt Date: 20210706
  Transmission Date: 20211014
  Serious: Yes (Hospitalization)
  Sender: FDA-Public Use
  Company Number: DE-BAUSCH-BL-2021-022656

PATIENT
  Age: 61 Year
  Sex: Male

DRUGS (4)
  1. DORZOLAMIDE/TIMOLOL [Suspect]
     Active Substance: DORZOLAMIDE\TIMOLOL
     Indication: PRODUCT USED FOR UNKNOWN INDICATION
     Dosage: 1 DROPS, 1?0?1?0
     Route: 047
  2. NEPAFENAC [Concomitant]
     Active Substance: NEPAFENAC
     Indication: PRODUCT USED FOR UNKNOWN INDICATION
     Dosage: 1 DROPS, 2?0?0?0, DROPS
     Route: 047
  3. BRIMONIDINE [Concomitant]
     Active Substance: BRIMONIDINE TARTRATE
     Indication: PRODUCT USED FOR UNKNOWN INDICATION
     Dosage: 1 DROPS, 1?1?1?0, DROPS
     Route: 047
  4. SERENOA [Concomitant]
     Indication: PRODUCT USED FOR UNKNOWN INDICATION
     Dosage: 1?0?0?0, CAPSULES
     Route: 048

REACTIONS (5)
  - Back pain [Recovering/Resolving]
  - Flank pain [Recovering/Resolving]
  - Renal colic [Recovering/Resolving]
  - Nocturia [Recovering/Resolving]
  - Nausea [Recovering/Resolving]
